FAERS Safety Report 9338040 (Version 2)
Quarter: 2013Q3

REPORT INFORMATION
  Report Type: Report from Study
  Country: US (occurrence: US)
  Receive Date: 20130610
  Receipt Date: 20130710
  Transmission Date: 20140515
  Serious: Yes (Death)
  Sender: FDA-Public Use
  Company Number: US-ROCHE-1234489

PATIENT
  Sex: Female

DRUGS (23)
  1. ZELBORAF [Suspect]
     Indication: PRODUCT USED FOR UNKNOWN INDICATION
     Route: 048
  2. ACYCLOVIR [Concomitant]
     Route: 065
     Dates: start: 20130114
  3. ALPRAZOLAM [Concomitant]
     Route: 065
     Dates: start: 20130131
  4. DEXAMETHASONE [Concomitant]
     Route: 065
     Dates: start: 20130131
  5. DOXYCYCLINE HYCLATE [Concomitant]
     Route: 065
     Dates: start: 20130311
  6. ESCITALOPRAM OXALATE [Concomitant]
     Route: 065
     Dates: start: 20130225
  7. FUROSEMIDE [Concomitant]
     Route: 065
     Dates: start: 20130114
  8. HYDROCODONE/ACETAMINOPHEN [Concomitant]
     Route: 065
     Dates: start: 20130121
  9. KLOR-CON 10 [Concomitant]
     Route: 065
     Dates: start: 20130114
  10. ONDANSETRON [Concomitant]
     Route: 065
     Dates: start: 20130430
  11. ONDANSETRON HCL [Concomitant]
     Route: 065
     Dates: start: 20130422
  12. HYDROMORPHONE HCL [Concomitant]
     Route: 065
  13. PROMETHAZINE HCL [Concomitant]
     Route: 048
  14. ZOLPIDEM TARTRATE [Concomitant]
     Route: 048
  15. AMBIEN [Concomitant]
     Route: 048
     Dates: start: 20130121, end: 20130401
  16. ENDOCET [Concomitant]
     Dosage: 1-2 (10-325 MG)
     Route: 048
     Dates: start: 20130103, end: 20130118
  17. HEPARIN LOCK FLUSH [Concomitant]
     Dosage: DATE OF LAST DOSE: 25/FEB/2013
     Route: 042
     Dates: start: 20130131, end: 20130225
  18. LEVOFLOXACIN [Concomitant]
     Route: 048
     Dates: end: 20130612
  19. MAGNESIUM OXIDE [Concomitant]
     Route: 065
     Dates: start: 20130529, end: 20130628
  20. PALONOSETRON [Concomitant]
     Route: 042
     Dates: start: 20130430, end: 20130430
  21. PERCOCET [Concomitant]
     Dosage: 10-325 MG
     Route: 048
     Dates: start: 20130118, end: 20130121
  22. SANCUSO [Concomitant]
     Dosage: 3.1 MG/24 HR
     Route: 062
     Dates: start: 20130529, end: 20130605
  23. ZOLOFT [Concomitant]
     Route: 048
     Dates: start: 20130311, end: 20130510

REACTIONS (1)
  - Death [Fatal]
